FAERS Safety Report 5957356-8 (Version None)
Quarter: 2008Q4

REPORT INFORMATION
  Report Type: 
  Country: None (occurrence: None)
  Receive Date: 20081114
  Receipt Date: 20081105
  Transmission Date: 20090506
  Serious: Yes (Hospitalization)
  Sender: FDA-Public Use
  Company Number: 2008SP022655

PATIENT
  Age: 58 Year
  Sex: Female

DRUGS (1)
  1. INTRON A [Suspect]
     Indication: MALIGNANT MELANOMA STAGE III
     Dosage: 40 MIU;QD;IV
     Route: 042
     Dates: start: 20081013, end: 20081103

REACTIONS (2)
  - HEPATIC LESION [None]
  - LIVER ABSCESS [None]
